FAERS Safety Report 19909383 (Version 1)
Quarter: 2021Q4

REPORT INFORMATION
  Report Type: Spontaneous
  Country: US (occurrence: US)
  Receive Date: 20211001
  Receipt Date: 20211001
  Transmission Date: 20220303
  Serious: No
  Sender: FDA-Public Use
  Company Number: US-AMARIN PHARMA, INC.-2021AMR000285

PATIENT
  Age: 62 Year
  Sex: Male
  Weight: 88.53 kg

DRUGS (5)
  1. VASCEPA [Suspect]
     Active Substance: ICOSAPENT ETHYL
     Indication: Weight decreased
  2. VASCEPA [Suspect]
     Active Substance: ICOSAPENT ETHYL
  3. VASCEPA [Suspect]
     Active Substance: ICOSAPENT ETHYL
  4. METFORMIN [Concomitant]
     Active Substance: METFORMIN HYDROCHLORIDE
     Indication: Product used for unknown indication
     Dates: start: 2009
  5. ATORVASTATIN [Concomitant]
     Active Substance: ATORVASTATIN
     Indication: Product used for unknown indication
     Dates: start: 2019

REACTIONS (8)
  - Eructation [Unknown]
  - Throat irritation [Recovering/Resolving]
  - Vomiting [Unknown]
  - Dysphagia [Unknown]
  - Flatulence [Not Recovered/Not Resolved]
  - Underdose [Not Recovered/Not Resolved]
  - Off label use [Not Recovered/Not Resolved]
  - Therapy interrupted [Unknown]
